FAERS Safety Report 8293787-1 (Version None)
Quarter: 2012Q2

REPORT INFORMATION
  Report Type: 
  Country: None (occurrence: None)
  Receive Date: 20120413
  Receipt Date: 20120411
  Transmission Date: 20120825
  Serious: Yes (Hospitalization, Other)
  Sender: FDA-Public Use
  Company Number: ADR-2011-10760

PATIENT
  Age: 18 Year
  Sex: Male

DRUGS (4)
  1. PERIACTIN [Concomitant]
  2. VALIUM [Concomitant]
  3. ORAL BACLOFEN [Concomitant]
  4. LIORESAL [Suspect]
     Indication: MUSCLE SPASTICITY
     Dosage: 1265.4 MCG, DAILY, INTR
     Route: 037

REACTIONS (5)
  - DEVICE MALFUNCTION [None]
  - WITHDRAWAL SYNDROME [None]
  - HYPERTONIA [None]
  - HICCUPS [None]
  - PYREXIA [None]
